FAERS Safety Report 8331455-8 (Version None)
Quarter: 2012Q2

REPORT INFORMATION
  Report Type: 
  Country: None (occurrence: None)
  Receive Date: 20120502
  Receipt Date: 20120417
  Transmission Date: 20120825
  Serious: No
  Sender: FDA-Public Use
  Company Number: US-AMGEN-USASP2012024563

PATIENT
  Age: 57 Year
  Sex: Male

DRUGS (2)
  1. ENBREL [Suspect]
     Indication: ANKYLOSING SPONDYLITIS
     Dosage: 50 MG, QWK
     Dates: start: 20111130
  2. OXYCODONE                          /00045603/ [Concomitant]
     Dosage: 5 MILLIGRAM AT NIGHT

REACTIONS (8)
  - ABDOMINAL PAIN [None]
  - LACRIMATION INCREASED [None]
  - DRY EYE [None]
  - DRUG INEFFECTIVE [None]
  - NERVOUSNESS [None]
  - MUSCULOSKELETAL STIFFNESS [None]
  - INSOMNIA [None]
  - MOBILITY DECREASED [None]
